FAERS Safety Report 8256787 (Version 4)
Quarter: 2013Q4

REPORT INFORMATION
  Report Type: Report from Study
  Country: PH (occurrence: PH)
  Receive Date: 20111121
  Receipt Date: 20131221
  Transmission Date: 20140711
  Serious: Yes (Hospitalization)
  Sender: FDA-Public Use
  Company Number: PH-ROCHE-726235

PATIENT
  Age: 52 Year
  Sex: Female
  Weight: 52 kg

DRUGS (12)
  1. BEVACIZUMAB [Suspect]
     Indication: HER-2 POSITIVE BREAST CANCER
     Dosage: TOTAL DOSE:780MG, FORM:VIALS, LAST DOSE PRIOR TO SAE: 20 AUGUST 2010, DOSE ON HOLD
     Route: 042
     Dates: start: 20100119, end: 20100820
  2. BEVACIZUMAB [Suspect]
     Route: 042
  3. TRASTUZUMAB [Suspect]
     Indication: HER-2 POSITIVE BREAST CANCER
     Dosage: LOADING DOSE: 8MG/KG, ONLY ON DAY 1 OF CYCLE 1
     Route: 042
  4. TRASTUZUMAB [Suspect]
     Dosage: MAINTAINANCE DOSE, LAST DOSE PRIOR TO SAE: 20 AUGUST 2010, FORM: VIALS.TOTAL DOSE: 312 MG, ON HOLD.
     Route: 042
     Dates: start: 20100209, end: 20100820
  5. TRASTUZUMAB [Suspect]
     Route: 042
  6. CARBOPLATIN [Suspect]
     Indication: HER-2 POSITIVE BREAST CANCER
     Dosage: LAST DOSER: 07 MAY 2010,DOSE LEVEL:6AUC, DOSE FORM : VIAL
     Route: 042
  7. DOCETAXEL [Suspect]
     Indication: HER-2 POSITIVE BREAST CANCER
     Dosage: LAST DOSE 13 APRIL 2010, DOSE LEVEL : 60MG/M2
     Route: 042
  8. FOLIC ACID [Concomitant]
     Route: 065
  9. VITAMIN B COMPLEX [Concomitant]
     Route: 065
  10. FESO4 [Concomitant]
     Route: 065
  11. LACIDIPINE [Concomitant]
     Route: 065
     Dates: start: 20100202, end: 20100901
  12. LACIDIPINE [Concomitant]
     Route: 065
     Dates: start: 20100904

REACTIONS (2)
  - Ventricular arrhythmia [Recovered/Resolved]
  - Hypertension [Recovering/Resolving]
